FAERS Safety Report 9209658 (Version 1)
Quarter: 2013Q2

REPORT INFORMATION
  Report Type: Report from Study
  Country: US (occurrence: US)
  Receive Date: 20130404
  Receipt Date: 20130404
  Transmission Date: 20140414
  Serious: No
  Sender: FDA-Public Use
  Company Number: US-VERTEX PHARMACEUTICALS INC.-2013-004432

PATIENT
  Age: 58 Year
  Sex: Female
  Weight: 75 kg

DRUGS (4)
  1. VX-950 (TELAPREVIR) [Suspect]
     Indication: HEPATITIS C
     Dosage: 750 MG, TID
     Route: 048
  2. RIBASPHERE [Suspect]
     Indication: HEPATITIS C
     Dosage: 200 MG
  3. PEGINTRON [Suspect]
     Indication: HEPATITIS C
     Dosage: 80 MCG
  4. AMLODIPINE [Concomitant]
     Dosage: 2.5 MG

REACTIONS (2)
  - Fatigue [Recovered/Resolved]
  - Rash [Unknown]
